FAERS Safety Report 12488296 (Version 2)
Quarter: 2016Q2

REPORT INFORMATION
  Report Type: Spontaneous
  Country: IT (occurrence: IT)
  Receive Date: 20160622
  Receipt Date: 20160628
  Transmission Date: 20160815
  Serious: Yes (Other)
  Sender: FDA-Public Use
  Company Number: IT-MYLANLABS-2016M1023605

PATIENT

DRUGS (2)
  1. SUMATRIPTAN. [Suspect]
     Active Substance: SUMATRIPTAN
     Indication: HEADACHE
     Dosage: UNK UNK, TOTAL
     Route: 048
     Dates: start: 20160404, end: 20160404
  2. LIOMETACEN                         /00003802/ [Suspect]
     Active Substance: INDOMETACIN MEGLUMINE
     Indication: HEADACHE
     Dosage: UNK UNK, TOTAL
     Dates: start: 20160404, end: 20160404

REACTIONS (3)
  - Nausea [Recovering/Resolving]
  - Migraine [Recovering/Resolving]
  - Drug abuse [Recovering/Resolving]

NARRATIVE: CASE EVENT DATE: 20160404
